FAERS Safety Report 15372739 (Version 2)
Quarter: 2018Q3

REPORT INFORMATION
  Report Type: Spontaneous
  Country: GB (occurrence: GB)
  Receive Date: 20180912
  Receipt Date: 20180919
  Transmission Date: 20181010
  Serious: Yes (Other)
  Sender: FDA-Public Use
  Company Number: GB-STRIDES ARCOLAB LIMITED-2018SP007667

PATIENT

DRUGS (4)
  1. PREDNISOLONE. [Suspect]
     Active Substance: PREDNISOLONE
     Indication: CHRONIC LYMPHOCYTIC INFLAMMATION WITH PONTINE PERIVASCULAR ENHANCEMENT RESPONSIVE TO STEROIDS
     Dosage: UNK
     Route: 048
  2. INFLIXIMAB [Suspect]
     Active Substance: INFLIXIMAB
     Indication: CHRONIC LYMPHOCYTIC INFLAMMATION WITH PONTINE PERIVASCULAR ENHANCEMENT RESPONSIVE TO STEROIDS
     Dosage: UNK
     Route: 065
  3. METHYLPREDNISOLONE. [Suspect]
     Active Substance: METHYLPREDNISOLONE
     Indication: CHRONIC LYMPHOCYTIC INFLAMMATION WITH PONTINE PERIVASCULAR ENHANCEMENT RESPONSIVE TO STEROIDS
     Dosage: UNK
     Route: 042
  4. MYCOPHENOLATE MOFETIL. [Suspect]
     Active Substance: MYCOPHENOLATE MOFETIL
     Indication: CHRONIC LYMPHOCYTIC INFLAMMATION WITH PONTINE PERIVASCULAR ENHANCEMENT RESPONSIVE TO STEROIDS
     Dosage: UNK
     Route: 065

REACTIONS (9)
  - Urinary incontinence [Unknown]
  - Epstein-Barr virus associated lymphoma [Unknown]
  - Off label use [Unknown]
  - Bulbar palsy [Unknown]
  - Lethargy [Unknown]
  - Hemiplegia [Unknown]
  - Disease recurrence [Unknown]
  - Ataxia [Unknown]
  - Abnormal behaviour [Unknown]
